FAERS Safety Report 13137022 (Version 1)
Quarter: 2017Q1

REPORT INFORMATION
  Report Type: Spontaneous
  Country: CA (occurrence: CA)
  Receive Date: 20170123
  Receipt Date: 20170123
  Transmission Date: 20170428
  Serious: Yes (Hospitalization, Other)
  Sender: FDA-Public Use
  Company Number: CA-TEVA-731800ACC

PATIENT
  Age: 57 Year
  Sex: Male
  Weight: 94 kg

DRUGS (13)
  1. LISINOPRIL. [Concomitant]
     Active Substance: LISINOPRIL
  2. ACETAMINOPHENE [Concomitant]
  3. VERAPAMIL [Concomitant]
     Active Substance: VERAPAMIL HYDROCHLORIDE
  4. CIPROFLOXACIN. [Suspect]
     Active Substance: CIPROFLOXACIN
     Indication: PSEUDOMONAS INFECTION
     Dosage: 1500 MILLIGRAM DAILY;
     Route: 048
  5. HCTZ [Concomitant]
     Active Substance: HYDROCHLOROTHIAZIDE
  6. MORPHINE [Concomitant]
     Active Substance: MORPHINE
  7. GRAVOL [Concomitant]
     Active Substance: DIMENHYDRINATE
  8. INSULIN TORONTO [Concomitant]
  9. ENOXAPARIN [Concomitant]
     Active Substance: ENOXAPARIN
  10. ENOXAPARIN [Concomitant]
     Active Substance: ENOXAPARIN
  11. INSULIN GLARGINE [Concomitant]
     Active Substance: INSULIN GLARGINE
  12. INVANZ [Concomitant]
     Active Substance: ERTAPENEM SODIUM
  13. SIMVASTATIN. [Concomitant]
     Active Substance: SIMVASTATIN

REACTIONS (3)
  - Acute kidney injury [Recovered/Resolved]
  - Tubulointerstitial nephritis [Recovered/Resolved]
  - Renal tubular necrosis [Recovered/Resolved]
